FAERS Safety Report 21877796 (Version 1)
Quarter: 2023Q1

REPORT INFORMATION
  Report Type: Report from Study
  Country: US (occurrence: US)
  Receive Date: 20230118
  Receipt Date: 20230118
  Transmission Date: 20230418
  Serious: Yes (Other)
  Sender: FDA-Public Use
  Company Number: US-TAKEDA-2022TUS071256

PATIENT
  Age: 29 Year
  Sex: Female

DRUGS (2)
  1. HUMAN IMMUNOGLOBULIN G\HYALURONIDASE RECOMBINANT HUMAN [Suspect]
     Active Substance: HUMAN IMMUNOGLOBULIN G\HYALURONIDASE RECOMBINANT HUMAN
     Indication: Primary immunodeficiency syndrome
     Dosage: UNK
     Route: 042
     Dates: start: 20221001
  2. HUMAN IMMUNOGLOBULIN G\HYALURONIDASE RECOMBINANT HUMAN [Suspect]
     Active Substance: HUMAN IMMUNOGLOBULIN G\HYALURONIDASE RECOMBINANT HUMAN
     Dosage: 30 GRAM
     Route: 065
     Dates: start: 20230106

REACTIONS (8)
  - Seizure [Recovered/Resolved]
  - Erythema [Unknown]
  - Pruritus [Unknown]
  - Tremor [Unknown]
  - Influenza like illness [Unknown]
  - Infusion site erythema [Unknown]
  - Vomiting [Recovered/Resolved]
  - Abdominal pain [Recovered/Resolved]

NARRATIVE: CASE EVENT DATE: 20221001
